FAERS Safety Report 6025082-5 (Version None)
Quarter: 2008Q4

REPORT INFORMATION
  Report Type: 
  Country: None (occurrence: None)
  Receive Date: 20081224
  Receipt Date: 20081217
  Transmission Date: 20090506
  Serious: Yes (Death)
  Sender: FDA-Public Use
  Company Number: 2008003299

PATIENT
  Age: 50 Year
  Sex: Male

DRUGS (3)
  1. ERLOTINIB (ERLOTINIB) (TABLET) (ERLOTINIB) [Suspect]
     Indication: LUNG NEOPLASM MALIGNANT
     Dosage: ORAL
     Route: 048
     Dates: start: 20081120, end: 20081129
  2. SPIRIVA [Suspect]
     Dates: end: 20081129
  3. ALLFLUSS [Concomitant]

REACTIONS (1)
  - CARDIOPULMONARY FAILURE [None]
